FAERS Safety Report 7433199-3 (Version None)
Quarter: 2011Q2

REPORT INFORMATION
  Report Type: 
  Country: None (occurrence: None)
  Receive Date: 20110422
  Receipt Date: 20110415
  Transmission Date: 20111010
  Serious: No
  Sender: FDA-Public Use
  Company Number: US-B.I. PHARMACEUTICALS,INC./RIDGEFIELD-2011-BP-06858BP

PATIENT
  Age: 83 Year
  Sex: Female

DRUGS (8)
  1. SIMINGPATIN [Concomitant]
     Dosage: 20 MG
  2. ASPIRIN [Concomitant]
     Dosage: 81 MG
  3. RAMIPRIL [Concomitant]
     Dosage: 25 MG
  4. CALTRATE PLUS VIT D [Concomitant]
  5. SYNTHROID [Concomitant]
     Indication: HYPOTHYROIDISM
     Dosage: 100 MG
  6. DILTIAZEM ER (CARDIZEM) [Concomitant]
     Dosage: 240 MG
  7. PRADAXA [Suspect]
     Indication: ATRIAL FIBRILLATION
     Dosage: 300 MG
     Route: 048
     Dates: start: 20110201
  8. ATENOLOL [Concomitant]
     Dosage: 50 MG

REACTIONS (2)
  - THROAT TIGHTNESS [None]
  - CHOKING SENSATION [None]
